FAERS Safety Report 13814945 (Version 3)
Quarter: 2017Q4

REPORT INFORMATION
  Report Type: Spontaneous
  Country: PT (occurrence: PT)
  Receive Date: 20170731
  Receipt Date: 20171222
  Transmission Date: 20180320
  Serious: Yes (Hospitalization, Other)
  Sender: FDA-Public Use
  Company Number: PT-MYLANLABS-2017M1044203

PATIENT
  Age: 23 Year
  Sex: Male

DRUGS (6)
  1. ABACAVIR + LAMIVUDINA MYLAN [Suspect]
     Active Substance: ABACAVIR\LAMIVUDINE
     Indication: HIV INFECTION
     Route: 048
     Dates: start: 20170619, end: 20170629
  2. TIVICAY [Suspect]
     Active Substance: DOLUTEGRAVIR SODIUM
     Indication: HIV INFECTION
  3. ALPRAZOLAM. [Concomitant]
     Active Substance: ALPRAZOLAM
     Route: 048
  4. VALPROATO SEMISODICO [Concomitant]
     Active Substance: DIVALPROEX SODIUM
     Route: 048
  5. QUETIAPINA [Concomitant]
     Active Substance: QUETIAPINE
     Route: 048
  6. TIVICAY [Suspect]
     Active Substance: DOLUTEGRAVIR SODIUM
     Indication: HIV INFECTION
     Route: 048
     Dates: start: 20170619, end: 20170629

REACTIONS (6)
  - Lymphadenitis [Unknown]
  - Eosinophilia [Unknown]
  - Rash [Unknown]
  - Hepatosplenomegaly [Unknown]
  - Drug reaction with eosinophilia and systemic symptoms [Unknown]
  - Pyrexia [Recovered/Resolved]

NARRATIVE: CASE EVENT DATE: 20170626
